FAERS Safety Report 8455391-1 (Version None)
Quarter: 2012Q2

REPORT INFORMATION
  Report Type: 
  Country: None (occurrence: None)
  Receive Date: 20120621
  Receipt Date: 20120613
  Transmission Date: 20120825
  Serious: Yes (Other)
  Sender: FDA-Public Use
  Company Number: US-BRISTOL-MYERS SQUIBB COMPANY-16683542

PATIENT
  Sex: Female

DRUGS (2)
  1. COUMADIN [Suspect]
     Dates: start: 20060101
  2. WARFARIN SODIUM [Suspect]

REACTIONS (1)
  - TRANSIENT ISCHAEMIC ATTACK [None]
